FAERS Safety Report 4327983-2 (Version None)
Quarter: 2004Q1

REPORT INFORMATION
  Report Type: 
  Country: None (occurrence: None)
  Receive Date: 20040325
  Receipt Date: 20040312
  Transmission Date: 20041129
  Serious: Yes (Hospitalization, Other)
  Sender: FDA-Public Use
  Company Number: 2004017640

PATIENT
  Sex: Male

DRUGS (2)
  1. NEURONTIN [Suspect]
     Indication: PAIN IN EXTREMITY
     Dosage: 3200 MG (QID) , ORAL
     Route: 048
     Dates: end: 20040101
  2. OXYCODONE HCL [Concomitant]

REACTIONS (3)
  - DIFFUSE ALVEOLAR DAMAGE [None]
  - LUNG INJURY [None]
  - RESPIRATORY FAILURE [None]
